FAERS Safety Report 7480409-2 (Version None)
Quarter: 2011Q2

REPORT INFORMATION
  Report Type: 
  Country: None (occurrence: None)
  Receive Date: 20110516
  Receipt Date: 20110503
  Transmission Date: 20111010
  Serious: Yes (Hospitalization, Other)
  Sender: FDA-Public Use
  Company Number: PHHY2011CA26624

PATIENT

DRUGS (6)
  1. INSULIN [Concomitant]
     Dosage: 30 U, BID
     Route: 058
  2. MICARDIS HCT [Concomitant]
     Dosage: 1 DF, UNK
  3. TEKTURNA [Suspect]
     Indication: PROTEINURIA
  4. NORVASC [Concomitant]
     Dosage: 20 MG, UNK
     Route: 048
  5. METFORMIN HCL [Concomitant]
     Dosage: 1 G, BID
     Route: 048
  6. TERAZOSIN HCL [Concomitant]
     Dosage: 5 MG, UNK

REACTIONS (6)
  - ISCHAEMIC CEREBRAL INFARCTION [None]
  - TRANSIENT ISCHAEMIC ATTACK [None]
  - SENSORY LOSS [None]
  - GLYCOSYLATED HAEMOGLOBIN INCREASED [None]
  - HYPOAESTHESIA [None]
  - URINE PROTEIN/CREATININE RATIO INCREASED [None]
